FAERS Safety Report 16820767 (Version 1)
Quarter: 2019Q3

REPORT INFORMATION
  Report Type: Report from Study
  Country: None (occurrence: US)
  Receive Date: 20190918
  Receipt Date: 20190918
  Transmission Date: 20191005
  Serious: Yes (Other)
  Sender: FDA-Public Use
  Company Number: US-ABBVIE-19K-163-2846508-00

PATIENT
  Age: 65 Year
  Sex: Female

DRUGS (2)
  1. HUMIRA [Suspect]
     Active Substance: ADALIMUMAB
     Indication: RHEUMATOID ARTHRITIS
     Route: 058
     Dates: start: 201510, end: 201906
  2. HUMIRA [Suspect]
     Active Substance: ADALIMUMAB
     Route: 058
     Dates: start: 201906

REACTIONS (13)
  - Osteoarthritis [Recovered/Resolved]
  - Umbilical hernia [Not Recovered/Not Resolved]
  - Urinary bladder suspension [Recovered/Resolved]
  - Gastric infection [Recovered/Resolved]
  - Chondropathy [Recovered/Resolved]
  - Back pain [Recovered/Resolved]
  - Fall [Recovered/Resolved]
  - Pain [Recovered/Resolved]
  - Colostomy [Unknown]
  - Uterine prolapse [Recovered/Resolved]
  - Pain in extremity [Not Recovered/Not Resolved]
  - Joint injury [Unknown]
  - Poor peripheral circulation [Recovered/Resolved]

NARRATIVE: CASE EVENT DATE: 2017
